FAERS Safety Report 22947194 (Version 2)
Quarter: 2024Q1

REPORT INFORMATION
  Report Type: Spontaneous
  Country: US (occurrence: None)
  Receive Date: 20230915
  Receipt Date: 20240320
  Transmission Date: 20240410
  Serious: No
  Sender: FDA-Public Use
  Company Number: US-ROCHE-3275447

PATIENT
  Age: 74 Year
  Sex: Male

DRUGS (2)
  1. VABYSMO [Suspect]
     Active Substance: FARICIMAB\FARICIMAB-SVOA
     Indication: Neovascular age-related macular degeneration
     Dosage: 0.05 ML OF 120 MG/ML SOLUTION
     Route: 050
     Dates: start: 20220519
  2. VABYSMO [Suspect]
     Active Substance: FARICIMAB\FARICIMAB-SVOA
     Route: 050
     Dates: start: 20220519

REACTIONS (4)
  - Eye pain [Recovered/Resolved]
  - Off label use [Unknown]
  - Product administration error [Unknown]
  - Hypoacusis [Unknown]
